FAERS Safety Report 14121146 (Version 1)
Quarter: 2017Q4

REPORT INFORMATION
  Report Type: Spontaneous
  Country: US (occurrence: US)
  Receive Date: 20171024
  Receipt Date: 20171024
  Transmission Date: 20180321
  Serious: No
  Sender: FDA-Public Use
  Company Number: US-PERRIGO-17US000877

PATIENT
  Sex: Male

DRUGS (1)
  1. IMIQUIMOD. [Suspect]
     Active Substance: IMIQUIMOD
     Indication: NEOPLASM MALIGNANT
     Dosage: UNKNOWN, UNKOWN
     Route: 061
     Dates: start: 201701

REACTIONS (2)
  - Off label use [Recovered/Resolved]
  - Wound secretion [Unknown]

NARRATIVE: CASE EVENT DATE: 201701
